FAERS Safety Report 5538330-2 (Version None)
Quarter: 2007Q4

REPORT INFORMATION
  Report Type: 
  Country: None (occurrence: None)
  Receive Date: 20071205
  Receipt Date: 20071120
  Transmission Date: 20080405
  Serious: Yes (Hospitalization)
  Sender: FDA-Public Use
  Company Number: 07-501

PATIENT
  Age: 56 Year
  Sex: Male
  Weight: 69.8539 kg

DRUGS (4)
  1. ALEVE [Suspect]
     Indication: PAIN
     Dosage: 440 MG, DAILY, ORAL
     Route: 048
     Dates: start: 20071113, end: 20071113
  2. GRENERIC ENTERIC ASPIRIN [Concomitant]
  3. EYE VITAMIN [Concomitant]
  4. SIMVASTATIN [Concomitant]

REACTIONS (6)
  - BURNING SENSATION [None]
  - FALL [None]
  - HYPERHIDROSIS [None]
  - HYPOAESTHESIA ORAL [None]
  - PARAESTHESIA [None]
  - POSTURE ABNORMAL [None]
